FAERS Safety Report 18326976 (Version 2)
Quarter: 2023Q4

REPORT INFORMATION
  Report Type: Spontaneous
  Country: CN (occurrence: CN)
  Receive Date: 20200930
  Receipt Date: 20231202
  Transmission Date: 20240110
  Serious: Yes (Other)
  Sender: FDA-Public Use
  Company Number: CN-BAYER-2020-201910

PATIENT
  Age: 63 Year
  Sex: Male

DRUGS (4)
  1. NEXAVAR [Suspect]
     Active Substance: SORAFENIB
     Indication: Hepatic cancer
     Dosage: 400 MG, BID
     Route: 048
     Dates: start: 20180523, end: 20190114
  2. STIVARGA [Suspect]
     Active Substance: REGORAFENIB
     Indication: Hepatic cancer
     Dosage: 120 MG, QD
     Route: 048
     Dates: start: 20190115, end: 20190317
  3. STIVARGA [Suspect]
     Active Substance: REGORAFENIB
     Indication: Hepatic cancer
     Dosage: 80 MG, QD
     Route: 048
     Dates: start: 20190318
  4. ENTECAVIR [Concomitant]
     Active Substance: ENTECAVIR
     Indication: Chronic hepatitis B
     Dosage: UNK
     Dates: start: 20180523

REACTIONS (7)
  - Tumour embolism [None]
  - Splenic vein thrombosis [None]
  - Mesenteric artery thrombosis [None]
  - Hepatocellular carcinoma [Recovering/Resolving]
  - Gastric varices [None]
  - Pulmonary mass [None]
  - Off label use [None]

NARRATIVE: CASE EVENT DATE: 20180822
